FAERS Safety Report 5164677-8 (Version None)
Quarter: 2006Q4

REPORT INFORMATION
  Report Type: 
  Country: None (occurrence: None)
  Receive Date: 20061127
  Receipt Date: 20061114
  Transmission Date: 20070319
  Serious: Yes (Other)
  Sender: FDA-Public Use
  Company Number: 232654

PATIENT
  Age: 14 Year
  Sex: Female

DRUGS (1)
  1. NUTROPIN [Suspect]
     Indication: DRUG USE FOR UNKNOWN INDICATION
     Dates: start: 20030201, end: 20060201

REACTIONS (1)
  - VENTRICULAR EXTRASYSTOLES [None]
